FAERS Safety Report 13910002 (Version 1)
Quarter: 2017Q3

REPORT INFORMATION
  Report Type: Spontaneous
  Country: US (occurrence: US)
  Receive Date: 20170828
  Receipt Date: 20170828
  Transmission Date: 20171127
  Serious: No
  Sender: FDA-Public Use
  Company Number: US-ENDO PHARMACEUTICALS INC-2017-001672

PATIENT
  Age: 69 Year
  Sex: Male

DRUGS (11)
  1. PREDNISONE TABLETS 5MG [Suspect]
     Active Substance: PREDNISONE
     Indication: OPTIC NEURITIS
     Dosage: 8 TABLETS FOR 3 DAYS
     Route: 048
     Dates: start: 20170308
  2. VOLTAREN [Concomitant]
     Active Substance: DICLOFENAC SODIUM
     Indication: HEADACHE
  3. PREDNISONE TABLETS 5MG [Suspect]
     Active Substance: PREDNISONE
     Dosage: 6 TABLETS FOR 3 DAYS
     Route: 048
  4. PREDNISONE TABLETS 5MG [Suspect]
     Active Substance: PREDNISONE
     Dosage: 1 TABLET FOR 3 DAYS
     Route: 048
  5. PREDNISONE TABLETS 20MG [Suspect]
     Active Substance: PREDNISONE
     Indication: OPTIC NEURITIS
     Dosage: 1 DF, TID
     Route: 048
     Dates: start: 201702
  6. ASPIRIN                            /00002701/ [Concomitant]
     Active Substance: ASPIRIN
     Indication: CARDIOVASCULAR DISORDER
  7. PREDNISONE TABLETS 5MG [Suspect]
     Active Substance: PREDNISONE
     Dosage: 4 TABLETS FOR 3 DAYS
     Route: 048
  8. VITAMINS/OMEGA [Concomitant]
     Indication: SUPPLEMENTATION THERAPY
     Dosage: UNK
  9. PREDNISONE TABLETS 5MG [Suspect]
     Active Substance: PREDNISONE
     Dosage: 2 TABLETS FOR 3 DAYS
     Route: 048
  10. PREDNISONE TABLETS 5MG [Suspect]
     Active Substance: PREDNISONE
     Dosage: 1 TABLET EVERY OTHER DAY
     Route: 048
     Dates: end: 201703
  11. ATROPINE SULFATE. [Concomitant]
     Active Substance: ATROPINE SULFATE
     Indication: PUPIL DILATION PROCEDURE

REACTIONS (9)
  - Muscle spasms [Not Recovered/Not Resolved]
  - Swelling [Not Recovered/Not Resolved]
  - Asthenia [Unknown]
  - Swelling face [Unknown]
  - Dysgeusia [Not Recovered/Not Resolved]
  - Paraesthesia [Not Recovered/Not Resolved]
  - Sleep disorder [Unknown]
  - Abdominal distension [Unknown]
  - Drug ineffective [Unknown]

NARRATIVE: CASE EVENT DATE: 201702
